FAERS Safety Report 5284185-3 (Version None)
Quarter: 2007Q1

REPORT INFORMATION
  Report Type: 
  Country: None (occurrence: None)
  Receive Date: 20070328
  Receipt Date: 20070316
  Transmission Date: 20070707
  Serious: Yes (Death, Hospitalization)
  Sender: FDA-Public Use
  Company Number: 2006-02324

PATIENT
  Age: 66 Year
  Sex: Female
  Weight: 93.5 kg

DRUGS (14)
  1. VELCADE [Suspect]
     Indication: MULTIPLE MYELOMA
     Dosage: 1.30 MG/M2, UNK, IV BOLUS
     Route: 040
     Dates: start: 20060405, end: 20060408
  2. DECADRON [Suspect]
     Indication: MULTIPLE MYELOMA
     Dosage: 40.00 MG, UNK, INTRAVENOUS
     Route: 042
     Dates: start: 20060405, end: 20060408
  3. ASPIRIN [Concomitant]
  4. METFORMIN HCL [Concomitant]
  5. ZANTAC [Concomitant]
  6. LOVASTATIN [Concomitant]
  7. COREG [Concomitant]
  8. DILANTIN KAPSEAL [Concomitant]
  9. GLIPIZIDE [Concomitant]
  10. LASIX [Concomitant]
  11. POTASSIUM CHLORIDE [Concomitant]
  12. CENTRUM (VITAMINS NOS, MINERALS NOS) [Concomitant]
  13. LISINOPRIL [Concomitant]
  14. TRAZODONE HCL [Concomitant]

REACTIONS (13)
  - APNOEA [None]
  - ASTHENIA [None]
  - ATRIAL FIBRILLATION [None]
  - CARDIAC FAILURE CONGESTIVE [None]
  - CARDIOMYOPATHY [None]
  - DISEASE PROGRESSION [None]
  - ENCEPHALOMALACIA [None]
  - ENCEPHALOPATHY [None]
  - HEART RATE INCREASED [None]
  - METASTASES TO CENTRAL NERVOUS SYSTEM [None]
  - MULTIPLE MYELOMA [None]
  - NAUSEA [None]
  - VOMITING [None]
